FAERS Safety Report 10686108 (Version 1)
Quarter: 2014Q4

REPORT INFORMATION
  Report Type: Spontaneous
  Country: US (occurrence: US)
  Receive Date: 20141231
  Receipt Date: 20141231
  Transmission Date: 20150529
  Serious: Yes (Other)
  Sender: FDA-Public Use
  Company Number: US-ASTELLAS-2014US021626

PATIENT
  Age: 81 Year
  Sex: Male

DRUGS (2)
  1. XTANDI [Suspect]
     Active Substance: ENZALUTAMIDE
     Indication: PROSTATE CANCER
     Route: 048
  2. PERCOCET [Suspect]
     Active Substance: ACETAMINOPHEN\OXYCODONE HYDROCHLORIDE
     Indication: PAIN
     Dosage: UNK UNK, UNKNOWN FREQ.
     Route: 065

REACTIONS (10)
  - Fall [Unknown]
  - Upper limb fracture [Unknown]
  - Rib fracture [Unknown]
  - Nausea [Unknown]
  - Pain [Unknown]
  - Weight decreased [Unknown]
  - Skin abrasion [Unknown]
  - Fatigue [Recovered/Resolved]
  - Amnesia [Unknown]
  - Deafness [Unknown]

NARRATIVE: CASE EVENT DATE: 201412
